FAERS Safety Report 4869949-X (Version None)
Quarter: 2005Q4

REPORT INFORMATION
  Report Type: 
  Country: None (occurrence: None)
  Receive Date: 20051223
  Receipt Date: 20041129
  Transmission Date: 20060501
  Serious: Yes (Hospitalization)
  Sender: FDA-Public Use
  Company Number: 2004BI000427

PATIENT
  Age: 48 Year
  Sex: Female
  Weight: 79.3795 kg

DRUGS (6)
  1. AVONEX [Suspect]
     Indication: MULTIPLE SCLEROSIS
     Dosage: 30 UG; QW; IM
     Route: 030
     Dates: start: 19980101, end: 20030301
  2. AVONEX [Suspect]
     Indication: MULTIPLE SCLEROSIS
     Dosage: 30 UG; QW; IM
     Route: 030
     Dates: start: 20030901
  3. PAXIL [Concomitant]
  4. LORAZEPAM [Concomitant]
  5. ALLEGRA [Concomitant]
  6. MULTI-VITAMIN [Concomitant]

REACTIONS (4)
  - CONDITION AGGRAVATED [None]
  - CONFUSIONAL STATE [None]
  - GALLBLADDER DISORDER [None]
  - MEMORY IMPAIRMENT [None]
